FAERS Safety Report 24270349 (Version 2)
Quarter: 2024Q4

REPORT INFORMATION
  Report Type: Spontaneous
  Country: US (occurrence: US)
  Receive Date: 20240830
  Receipt Date: 20241008
  Transmission Date: 20250115
  Serious: No
  Sender: MERCK
  Company Number: US-009507513-2408USA001242

PATIENT
  Age: 85 Year

DRUGS (1)
  1. KEYTRUDA [Suspect]
     Active Substance: PEMBROLIZUMAB
     Indication: Small cell carcinoma
     Dosage: UNK
     Route: 042

REACTIONS (1)
  - Poor venous access [Unknown]

NARRATIVE: CASE EVENT DATE: 20240101
